FAERS Safety Report 24106470 (Version 1)
Quarter: 2024Q3

REPORT INFORMATION
  Report Type: Report from Study
  Country: TH (occurrence: TH)
  Receive Date: 20240717
  Receipt Date: 20240717
  Transmission Date: 20241016
  Serious: Yes (Other)
  Sender: PPD DEVELOPMENT LP
  Company Number: TH-ROCHE-3579748

PATIENT

DRUGS (1)
  1. PRALSETINIB [Suspect]
     Active Substance: PRALSETINIB
     Indication: Non-small cell lung cancer metastatic
     Dosage: UNK
     Route: 048

REACTIONS (7)
  - Coma [Unknown]
  - Muscle disorder [Unknown]
  - Blood disorder [Unknown]
  - Coagulopathy [Unknown]
  - Immobile [Unknown]
  - Muscle injury [Unknown]
  - Blood sodium decreased [Unknown]
